FAERS Safety Report 9523569 (Version 1)
Quarter: 2013Q3

REPORT INFORMATION
  Report Type: Spontaneous
  Country: BR (occurrence: BR)
  Receive Date: 20130913
  Receipt Date: 20130913
  Transmission Date: 20140515
  Serious: Yes (Other)
  Sender: FDA-Public Use
  Company Number: PHHY2013BR098099

PATIENT
  Age: 47 Year
  Sex: Male

DRUGS (1)
  1. AMIODARONE [Suspect]
     Dosage: 200 MG, PER DAY

REACTIONS (6)
  - Cardiomegaly [Recovering/Resolving]
  - Pulmonary toxicity [Recovering/Resolving]
  - Dyspnoea [Recovering/Resolving]
  - Cough [Recovering/Resolving]
  - Lung consolidation [Recovering/Resolving]
  - Pleural effusion [Recovering/Resolving]
